FAERS Safety Report 6580795-1 (Version None)
Quarter: 2010Q1

REPORT INFORMATION
  Report Type: 
  Country: None (occurrence: None)
  Receive Date: 20100213
  Receipt Date: 20100201
  Transmission Date: 20100710
  Serious: Yes (Hospitalization)
  Sender: FDA-Public Use
  Company Number: US-ELI_LILLY_AND_COMPANY-US201002001578

PATIENT
  Sex: Female

DRUGS (16)
  1. FORTEO [Suspect]
     Indication: OSTEOPOROSIS
     Dosage: 20 UG, DAILY (1/D)
     Route: 058
     Dates: start: 20091212
  2. ZOCOR [Concomitant]
     Dosage: 80 MG, UNK
  3. TRIAMTERENE [Concomitant]
     Dosage: 25 MG, DAILY (1/D)
  4. PROMETHAZINE [Concomitant]
     Dosage: 1 D/F, AS NEEDED
  5. METHADONE HCL [Concomitant]
     Dosage: 20 MG, AS NEEDED
  6. VICODIN [Concomitant]
     Dosage: 1 D/F, AS NEEDED
  7. BACLOFEN [Concomitant]
     Dosage: 10 MG, 3/D
  8. PANTOPRAZOLE [Concomitant]
     Dosage: 1 D/F, 2/D
  9. FLUTICASONE PROPIONATE [Concomitant]
     Dosage: 2 D/F, DAILY (1/D)
     Route: 045
  10. CALCIUM WITH VITAMIN D [Concomitant]
     Dosage: 2 D/F, DAILY (1/D)
  11. TAMSULOSIN [Concomitant]
     Dosage: 1 D/F, AFTER MEALS
  12. LACTULOSE [Concomitant]
     Dosage: 15 ML, DAILY (1/D)
  13. CHLORAL HYDRATE [Concomitant]
     Dosage: 5 ML, DAILY (1/D)
  14. CHLORAL HYDRATE [Concomitant]
     Dosage: 10 ML, DAILY (1/D)
  15. DIAZEPAM [Concomitant]
     Dosage: 5 MG, AS NEEDED
  16. ANAFRANIL [Concomitant]
     Dosage: 175 MG, EACH EVENING

REACTIONS (2)
  - APHONIA [None]
  - ARTHROPATHY [None]
